FAERS Safety Report 21720381 (Version 1)
Quarter: 2022Q4

REPORT INFORMATION
  Report Type: Spontaneous
  Country: US (occurrence: US)
  Receive Date: 20221213
  Receipt Date: 20221213
  Transmission Date: 20230113
  Serious: No
  Sender: FDA-Public Use
  Company Number: None

PATIENT
  Age: 67 Year
  Sex: Male

DRUGS (2)
  1. MYCOPHENOLATE MOFETIL [Suspect]
     Active Substance: MYCOPHENOLATE MOFETIL
     Indication: Birdshot chorioretinopathy
     Dosage: UNK
     Route: 048
  2. CYCLOSPORINE [Suspect]
     Active Substance: CYCLOSPORINE
     Indication: Birdshot chorioretinopathy
     Dosage: UNK
     Route: 048

REACTIONS (3)
  - Cognitive disorder [Not Recovered/Not Resolved]
  - Decreased appetite [Recovered/Resolved]
  - Depression [Recovered/Resolved]
